FAERS Safety Report 14170970 (Version 2)
Quarter: 2020Q3

REPORT INFORMATION
  Report Type: Report from Study
  Country: IT (occurrence: IT)
  Receive Date: 20171108
  Receipt Date: 20180817
  Transmission Date: 20201104
  Serious: Yes (Hospitalization)
  Sender: FDA-Public Use
  Company Number: IT-JNJFOC-20170907216

PATIENT
  Age: 60 Year
  Sex: Female

DRUGS (6)
  1. TRABECTEDIN [Suspect]
     Active Substance: TRABECTEDIN
     Indication: FALLOPIAN TUBE CANCER
     Dosage: C1D20
     Route: 042
     Dates: start: 20170817, end: 20170817
  2. TRABECTEDIN [Suspect]
     Active Substance: TRABECTEDIN
     Indication: OVARIAN CANCER RECURRENT
     Dosage: CYCLE 3 DAY 1
     Route: 042
     Dates: start: 20171019, end: 20171019
  3. TRABECTEDIN [Suspect]
     Active Substance: TRABECTEDIN
     Indication: OVARIAN CANCER RECURRENT
     Dosage: C1D20
     Route: 042
     Dates: start: 20170817, end: 20170817
  4. TRABECTEDIN [Suspect]
     Active Substance: TRABECTEDIN
     Indication: MALIGNANT PERITONEAL NEOPLASM
     Dosage: C1D20
     Route: 042
     Dates: start: 20170817, end: 20170817
  5. TRABECTEDIN [Suspect]
     Active Substance: TRABECTEDIN
     Indication: MALIGNANT PERITONEAL NEOPLASM
     Dosage: CYCLE 3 DAY 1
     Route: 042
     Dates: start: 20171019, end: 20171019
  6. TRABECTEDIN [Suspect]
     Active Substance: TRABECTEDIN
     Indication: FALLOPIAN TUBE CANCER
     Dosage: CYCLE 3 DAY 1
     Route: 042
     Dates: start: 20171019, end: 20171019

REACTIONS (2)
  - Pyrexia [Unknown]
  - Intestinal obstruction [Recovering/Resolving]

NARRATIVE: CASE EVENT DATE: 20170904
